FAERS Safety Report 4407373-4 (Version None)
Quarter: 2004Q3

REPORT INFORMATION
  Report Type: 
  Country: None (occurrence: None)
  Receive Date: 20040721
  Receipt Date: 20040713
  Transmission Date: 20050211
  Serious: Yes (Life-Threatening, Hospitalization)
  Sender: FDA-Public Use
  Company Number: 2004UW14439

PATIENT
  Age: 89 Year
  Sex: Female

DRUGS (13)
  1. ACERBON ^ZENECA^ [Suspect]
     Dosage: 5 MG QD PO
     Route: 048
     Dates: start: 20040303, end: 20040311
  2. VASOTEC [Suspect]
     Indication: HYPERTENSION
     Dosage: 5 MG QD
     Dates: end: 20040306
  3. METOPROLOL TARTRATE [Suspect]
     Dates: end: 20040311
  4. BELOC ZOC [Suspect]
     Dates: start: 20040301
  5. HYDROCHLOROTHIAZIDE/TRIAMTERENE [Concomitant]
     Dates: end: 20040301
  6. ASPIRIN [Concomitant]
     Dates: start: 20040301
  7. VIGANTOLETTEN [Concomitant]
  8. NOLVAGIN [Concomitant]
  9. FENTANYL [Concomitant]
  10. LACTULOSE [Concomitant]
  11. LEVOTHYROXINE SODIUM [Concomitant]
  12. NITRAZEPAM [Concomitant]
  13. PREDNISOLONE [Concomitant]

REACTIONS (11)
  - ARRHYTHMIA [None]
  - BILIARY TRACT DISORDER [None]
  - BLOOD IMMUNOGLOBULIN A INCREASED [None]
  - CHOLANGITIS [None]
  - CHOLELITHIASIS [None]
  - CHROMATURIA [None]
  - DIARRHOEA [None]
  - GALLBLADDER ENLARGEMENT [None]
  - HEPATITIS [None]
  - HEPATOCELLULAR DAMAGE [None]
  - TACHYCARDIA [None]
